FAERS Safety Report 9696970 (Version 1)
Quarter: 2013Q4

REPORT INFORMATION
  Report Type: Spontaneous
  Country: SK (occurrence: SK)
  Receive Date: 20131119
  Receipt Date: 20131119
  Transmission Date: 20140711
  Serious: Yes (Hospitalization)
  Sender: FDA-Public Use
  Company Number: SK-009507513-1311SVK007170

PATIENT
  Age: 9 Year
  Sex: Male
  Weight: 43 kg

DRUGS (2)
  1. SINGULAIR 4 MG [Suspect]
     Indication: RHINITIS ALLERGIC
     Dosage: UNK
     Route: 048
     Dates: start: 201110, end: 201110
  2. ALERID [Concomitant]
     Route: 048

REACTIONS (8)
  - Photopsia [Not Recovered/Not Resolved]
  - Vision blurred [Not Recovered/Not Resolved]
  - Anxiety [Unknown]
  - Personality disorder [Unknown]
  - Affect lability [Unknown]
  - Affective disorder [Unknown]
  - Blood immunoglobulin G increased [Unknown]
  - Toxoplasmosis [Unknown]
